FAERS Safety Report 10159973 (Version 1)
Quarter: 2014Q2

REPORT INFORMATION
  Report Type: Spontaneous
  Country: US (occurrence: US)
  Receive Date: 20140508
  Receipt Date: 20140508
  Transmission Date: 20141212
  Serious: No
  Sender: FDA-Public Use
  Company Number: US-GLAXOSMITHKLINE-A1047727A

PATIENT
  Age: 63 Year
  Sex: Female

DRUGS (6)
  1. TYKERB [Suspect]
     Indication: BREAST CANCER
     Dosage: 250MG PER DAY
     Route: 048
     Dates: start: 20130810
  2. ASPIRIN [Concomitant]
  3. CELEXA [Concomitant]
  4. CLARITIN [Concomitant]
  5. DILANTIN [Concomitant]
  6. LORAZEPAM [Concomitant]

REACTIONS (1)
  - Adverse reaction [Unknown]
